FAERS Safety Report 13943056 (Version 1)
Quarter: 2017Q3

REPORT INFORMATION
  Report Type: Spontaneous
  Country: US (occurrence: US)
  Receive Date: 20170906
  Receipt Date: 20170906
  Transmission Date: 20171128
  Serious: Yes (Other)
  Sender: FDA-Public Use
  Company Number: US-AMGEN-USASP2017131869

PATIENT

DRUGS (1)
  1. ENBREL [Suspect]
     Active Substance: ETANERCEPT
     Indication: PRODUCT USED FOR UNKNOWN INDICATION
     Dosage: 50 MG, QWK
     Route: 065
     Dates: start: 20170724, end: 20170804

REACTIONS (4)
  - Thrombocytopenia [Unknown]
  - Pyrexia [Unknown]
  - Injection site reaction [Unknown]
  - Myalgia [Unknown]

NARRATIVE: CASE EVENT DATE: 20170804
